FAERS Safety Report 7336110-9 (Version None)
Quarter: 2011Q1

REPORT INFORMATION
  Report Type: 
  Country: None (occurrence: None)
  Receive Date: 20110307
  Receipt Date: 20110225
  Transmission Date: 20110831
  Serious: Yes (Hospitalization, Other)
  Sender: FDA-Public Use
  Company Number: BR-SANOFI-AVENTIS-2011SA012327

PATIENT
  Age: 87 Year
  Sex: Female

DRUGS (4)
  1. OPTIPEN [Suspect]
     Indication: DIABETES MELLITUS
     Dates: start: 20080101, end: 20110226
  2. LANTUS [Suspect]
     Indication: TYPE 2 DIABETES MELLITUS
     Route: 058
     Dates: start: 20080101, end: 20110226
  3. DIAMICRON [Concomitant]
     Indication: TYPE 2 DIABETES MELLITUS
  4. JANUVIA [Concomitant]
     Indication: TYPE 2 DIABETES MELLITUS

REACTIONS (4)
  - AORTIC STENOSIS [None]
  - CONDITION AGGRAVATED [None]
  - FATIGUE [None]
  - CARDIAC FAILURE [None]
